FAERS Safety Report 6312318-6 (Version None)
Quarter: 2009Q3

REPORT INFORMATION
  Report Type: 
  Country: None (occurrence: None)
  Receive Date: 20090817
  Receipt Date: 20090807
  Transmission Date: 20100115
  Serious: Yes (Other)
  Sender: FDA-Public Use
  Company Number: US-ROCHE-645078

PATIENT
  Sex: Female
  Weight: 86.2 kg

DRUGS (7)
  1. BONIVA [Suspect]
     Indication: OSTEOPENIA
     Dosage: FORM:PILL
     Route: 048
     Dates: start: 20090216, end: 20090709
  2. ENALAPRIL MALEATE [Concomitant]
     Route: 048
     Dates: start: 20061229
  3. GLIMEPIRIDE [Concomitant]
     Route: 048
     Dates: start: 20051128
  4. JANUVIA [Concomitant]
     Route: 048
     Dates: start: 20090603
  5. LIPITOR [Concomitant]
     Route: 048
     Dates: start: 20070301
  6. FLUOXETINE [Concomitant]
     Indication: DEPRESSION
     Route: 048
     Dates: start: 20070709
  7. PULMICORT-100 [Concomitant]
     Indication: ASTHMA
     Dosage: 2 PUFFS; ROUTE: INHALE
     Dates: start: 20071227

REACTIONS (3)
  - BACK PAIN [None]
  - BLOOD GLUCOSE INCREASED [None]
  - GAIT DISTURBANCE [None]
